FAERS Safety Report 12772117 (Version 2)
Quarter: 2016Q4

REPORT INFORMATION
  Report Type: Report from Study
  Country: US (occurrence: US)
  Receive Date: 20160922
  Receipt Date: 20161021
  Transmission Date: 20170207
  Serious: Yes (Hospitalization)
  Sender: FDA-Public Use
  Company Number: US-JNJFOC-20160920924

PATIENT
  Age: 78 Year
  Sex: Male

DRUGS (11)
  1. GLIPIZIDE. [Concomitant]
     Active Substance: GLIPIZIDE
  2. FISH OIL W/TOCOPHEROL [Concomitant]
  3. OMEPRAZOLE. [Concomitant]
     Active Substance: OMEPRAZOLE
  4. IMBRUVICA [Suspect]
     Active Substance: IBRUTINIB
     Indication: CHRONIC LYMPHOCYTIC LEUKAEMIA
     Route: 048
     Dates: start: 20160908
  5. TACROLIMUS. [Concomitant]
     Active Substance: TACROLIMUS
  6. TAMSULOSIN [Concomitant]
     Active Substance: TAMSULOSIN
  7. DIGOX [Concomitant]
     Active Substance: DIGOXIN
  8. FENOFIBRATE. [Concomitant]
     Active Substance: FENOFIBRATE
  9. LAMIVUDINE. [Concomitant]
     Active Substance: LAMIVUDINE
  10. METOPROLOL. [Suspect]
     Active Substance: METOPROLOL
     Indication: BLOOD PRESSURE ABNORMAL
  11. ADEFOVIR DIPIVOXIL. [Concomitant]
     Active Substance: ADEFOVIR DIPIVOXIL

REACTIONS (8)
  - Haemoglobin decreased [Unknown]
  - Febrile neutropenia [Unknown]
  - Incorrect dose administered [Unknown]
  - Dizziness [Not Recovered/Not Resolved]
  - Chills [Unknown]
  - Platelet count decreased [Unknown]
  - Off label use [Unknown]
  - Hypotension [Unknown]

NARRATIVE: CASE EVENT DATE: 2016
